FAERS Safety Report 21177141 (Version 2)
Quarter: 2022Q3

REPORT INFORMATION
  Report Type: Other
  Country: CN (occurrence: None)
  Receive Date: 20220805
  Receipt Date: 20220905
  Transmission Date: 20221027
  Serious: Yes (Hospitalization)
  Sender: FDA-Public Use
  Company Number: CN-ROCHE-3153391

PATIENT
  Age: 53 Year
  Sex: Female
  Weight: 50 kg

DRUGS (16)
  1. CAPECITABINE [Suspect]
     Active Substance: CAPECITABINE
     Indication: Breast cancer metastatic
     Dosage: 3000 MG/DAY,29/APR/2021 TO 05/MAY/2021, 07/MAY/2021 TO 12/MAY/2021, 23/MAY/2021 TO 05/JUN/2021, 10/J
     Route: 048
     Dates: start: 20210429, end: 20210505
  2. CAPECITABINE [Suspect]
     Active Substance: CAPECITABINE
     Dosage: 2500 MG/DAY,?27/JUL/2021  TO 07/AUG/2021, 17/AUG/2021 TO 28/AUG/2021, 08/SEP/2021  TO 20/SEP/2021, 2
     Route: 048
     Dates: start: 20210614, end: 20210623
  3. CAPECITABINE [Suspect]
     Active Substance: CAPECITABINE
     Dosage: 2000 MG/DAY, 19/OCT/2021 TO 22/OCT/2021 TO 01/NOV/2021, 09/NOV/2021 TO 13/NOV/2021, 15/NOV/2021 TO?2
     Route: 048
     Dates: start: 20211019, end: 20211020
  4. CAPECITABINE [Suspect]
     Active Substance: CAPECITABINE
     Dosage: 03/JAN/2022, 11/JAN/2022 TO 24/JAN/2022, 02/FEB/2022 TO 15/FEB/2022, 24/FEB/2022 TO 09/MAR/2022 17/M
     Route: 048
     Dates: start: 20211130, end: 20211213
  5. CAPECITABINE [Suspect]
     Active Substance: CAPECITABINE
     Dosage: 1000 MG/DAY, 08/AUG/2021 TO 09/AUG/2021 (NO EVENING DOSE), 21/OCT/2021 TO 21/OCT/2021 (MISSED DOSE),
     Route: 048
     Dates: start: 20210808, end: 20210809
  6. CAPECITABINE [Suspect]
     Active Substance: CAPECITABINE
     Dosage: 27/SEP/2021 TO 27/SEP/2021, 14/JUL/2022 TO 14/JUL/2022
     Route: 048
     Dates: start: 20220714, end: 20220714
  7. CAPECITABINE [Suspect]
     Active Substance: CAPECITABINE
     Dosage: 17/AUG/2021 TO 28/AUG/2021, 29/APR/2021 TO 23/JUN/2021?08/SEP/2021 TO 20/SEP/2021, 28/SEP/2021 TO 11
     Route: 048
     Dates: start: 20210727, end: 20210807
  8. CAPECITABINE [Suspect]
     Active Substance: CAPECITABINE
     Dosage: 21/DEC/2021 TO 03/JAN/2022, 11/JAN/2022 TO 24/JAN/2022, 02/FEB/2022 TO 15/FEB/2022, 24/FEB/2022 TO 0
     Route: 048
     Dates: start: 20211130, end: 20211213
  9. LAPATINIB [Suspect]
     Active Substance: LAPATINIB
     Indication: Breast cancer metastatic
     Dosage: 1250 MG/DAY, ONCE DAILY
     Route: 048
     Dates: start: 20210429, end: 20210623
  10. LAPATINIB [Suspect]
     Active Substance: LAPATINIB
     Route: 048
     Dates: start: 20210927, end: 20210927
  11. LAPATINIB [Suspect]
     Active Substance: LAPATINIB
     Dosage: 1000 MG/DAY, ONCE DAILY
     Route: 048
     Dates: start: 20210928, end: 20220715
  12. LAPATINIB [Suspect]
     Active Substance: LAPATINIB
     Route: 048
     Dates: start: 20210803, end: 20210926
  13. METAMIZOLE SODIUM [Concomitant]
     Active Substance: METAMIZOLE SODIUM
     Dosage: 1 TABLET, WITH SPECIFIC DOSE UNKNOWN, ONCE, PO
  14. ACETAMINOPHEN [Concomitant]
     Active Substance: ACETAMINOPHEN
     Dosage: 1 TABLET, WITH SPECIFIC DOSE UNKNOWN, ONCE, PO
  15. AMOXICILLIN [Concomitant]
     Active Substance: AMOXICILLIN
     Dates: start: 20200718
  16. CEFTAZIDIME [Concomitant]
     Active Substance: CEFTAZIDIME
     Route: 041

REACTIONS (1)
  - Abdominal mass [Recovered/Resolved]

NARRATIVE: CASE EVENT DATE: 20220718
